FAERS Safety Report 6797670-X (Version None)
Quarter: 2010Q2

REPORT INFORMATION
  Report Type: 
  Country: None (occurrence: None)
  Receive Date: 20100623
  Receipt Date: 20100601
  Transmission Date: 20101027
  Serious: Yes (Other)
  Sender: FDA-Public Use
  Company Number: JP-SOLVAY-00310003600

PATIENT
  Age: 40 Year
  Sex: Male

DRUGS (5)
  1. FLUVOXAMINE MALEATE [Suspect]
     Indication: DEPRESSION
     Dosage: 50 MILLIGRAM(S) ORAL
     Route: 048
     Dates: start: 20100430, end: 20100507
  2. FAMOTIDINE [Suspect]
     Indication: DRUG USE FOR UNKNOWN INDICATION
     Dosage: 40 MILLIGRAM(S), ROUTE: ORAL
     Route: 048
     Dates: start: 20100409, end: 20100507
  3. GASMOTIN (MOSAPRIDE CITRATE) [Concomitant]
  4. COREMINAL (FLUTAZOLAM) [Concomitant]
  5. ATENENTOIN (ALDIOXA) [Concomitant]

REACTIONS (1)
  - CONVULSION [None]
